FAERS Safety Report 19866367 (Version 1)
Quarter: 2021Q3

REPORT INFORMATION
  Report Type: Spontaneous
  Country: CA (occurrence: CA)
  Receive Date: 20210921
  Receipt Date: 20210921
  Transmission Date: 20211014
  Serious: Yes (Other)
  Sender: FDA-Public Use
  Company Number: CA-SAMSUNG BIOEPIS-SB-2021-22021

PATIENT
  Age: 48 Year
  Sex: Male
  Weight: 147 kg

DRUGS (1)
  1. INFLIXIMAB [Suspect]
     Active Substance: INFLIXIMAB
     Indication: ANKYLOSING SPONDYLITIS
     Route: 042

REACTIONS (6)
  - Hepatic enzyme increased [Unknown]
  - Polyp [Unknown]
  - Off label use [Unknown]
  - Intentional product use issue [Unknown]
  - Diverticulitis [Unknown]
  - Product use issue [Unknown]
